FAERS Safety Report 7805982 (Version 8)
Quarter: 2013Q1

REPORT INFORMATION
  Report Type: Spontaneous
  Country: FR (occurrence: FR)
  Receive Date: 20110209
  Receipt Date: 20130205
  Transmission Date: 20140127
  Serious: Yes (Death, Hospitalization)
  Sender: FDA-Public Use
  Company Number: FR-MERCK-1102FRA00038

PATIENT
  Age: 76 None
  Sex: Female

DRUGS (13)
  1. JANUMET [Suspect]
     Indication: TYPE 2 DIABETES MELLITUS
     Dosage: 1 DF, BID
     Route: 048
     Dates: start: 20091215, end: 20101225
  2. LANTUS [Concomitant]
     Indication: TYPE 2 DIABETES MELLITUS
     Dosage: 60 IU, QD
     Route: 058
     Dates: start: 20100408, end: 20100728
  3. LANTUS [Concomitant]
     Dosage: 58 IU, QD
     Route: 058
     Dates: start: 20100729, end: 20100921
  4. LANTUS [Concomitant]
     Dosage: 54 IU, QD
     Route: 058
     Dates: start: 20100922, end: 20101224
  5. LANTUS [Concomitant]
     Dosage: 30 IU, QD
     Route: 058
     Dates: start: 20101225, end: 20110417
  6. LANTUS [Concomitant]
     Dosage: 28 IU, QD
     Route: 058
     Dates: start: 20110418
  7. LANTUS [Concomitant]
     Dosage: 62 IU, QD
     Route: 058
     Dates: end: 20100407
  8. GLICLAZIDE [Concomitant]
     Indication: TYPE 2 DIABETES MELLITUS
     Dosage: 120 MG, QD
     Route: 048
     Dates: start: 20100408, end: 20101224
  9. MONO-TILDIEM [Concomitant]
     Indication: HYPERTENSION
     Dosage: UNK
     Route: 048
  10. FOZIRETIC [Concomitant]
     Route: 048
  11. CARDENSIEL [Concomitant]
     Route: 048
  12. PREVISCAN [Concomitant]
     Indication: ARRHYTHMIA
     Dosage: 0.25 DF, QD
     Route: 048
  13. HEMIGOXINE NATIVELLE [Concomitant]
     Dosage: 1 DF, QD
     Route: 048

REACTIONS (9)
  - Colon cancer [Recovering/Resolving]
  - Metastasis [Fatal]
  - Metastases to peritoneum [Recovering/Resolving]
  - Cardiac failure [Recovered/Resolved]
  - Anuria [Unknown]
  - Weight decreased [Not Recovered/Not Resolved]
  - Hypoglycaemia [Recovered/Resolved]
  - Hypoglycaemia [Recovered/Resolved]
  - Bronchitis [Unknown]
